FAERS Safety Report 18716708 (Version 1)
Quarter: 2021Q1

REPORT INFORMATION
  Report Type: Spontaneous
  Country: US (occurrence: US)
  Receive Date: 20210107
  Receipt Date: 20210107
  Transmission Date: 20210419
  Serious: Yes (Disabling)
  Sender: FDA-Public Use
  Company Number: None

PATIENT
  Age: 87 Year
  Sex: Male
  Weight: 83.92 kg

DRUGS (8)
  1. NUVOLOG [Concomitant]
  2. AMLODIPINE [Concomitant]
     Active Substance: AMLODIPINE BESYLATE
  3. ZETIA [Concomitant]
     Active Substance: EZETIMIBE
  4. VASCEPA [Suspect]
     Active Substance: ICOSAPENT ETHYL
     Indication: BLOOD TRIGLYCERIDES INCREASED
     Dosage: ?          QUANTITY:2 DF DOSAGE FORM;?
     Route: 048
     Dates: start: 20191123, end: 20200909
  5. LANTUS [Concomitant]
     Active Substance: INSULIN GLARGINE
  6. PREDNISONE. [Concomitant]
     Active Substance: PREDNISONE
  7. LUTEIN [Concomitant]
     Active Substance: LUTEIN
  8. ASA 81 [Concomitant]
     Active Substance: ASPIRIN

REACTIONS (2)
  - Peripheral swelling [None]
  - Joint swelling [None]

NARRATIVE: CASE EVENT DATE: 20200307
